FAERS Safety Report 6381047-5 (Version None)
Quarter: 2009Q3

REPORT INFORMATION
  Report Type: 
  Country: None (occurrence: None)
  Receive Date: 20090929
  Receipt Date: 20090921
  Transmission Date: 20100115
  Serious: Yes (Hospitalization, Other)
  Sender: FDA-Public Use
  Company Number: US-WYE-H11095209

PATIENT
  Sex: Female

DRUGS (4)
  1. PROTONIX [Suspect]
     Indication: GASTROOESOPHAGEAL REFLUX DISEASE
     Route: 048
     Dates: start: 20050101
  2. LYRICA [Suspect]
     Indication: HERPES ZOSTER
     Dosage: UNKNOWN
     Dates: start: 20080101
  3. RISPERDAL [Concomitant]
     Dosage: UNKNOWN
  4. LIPITOR [Suspect]
     Indication: BLOOD CHOLESTEROL INCREASED
     Dosage: 10 MG DAILY FROM UNKNOWN DATE AND THEN INCREASED TO 40 MG DAILY ON UNKNOWN DATE IN 2008
     Route: 048

REACTIONS (8)
  - BACK DISORDER [None]
  - DIZZINESS [None]
  - FALL [None]
  - KNEE ARTHROPLASTY [None]
  - MASS [None]
  - NONSPECIFIC REACTION [None]
  - SPINAL COLUMN STENOSIS [None]
  - UPPER LIMB FRACTURE [None]
